FAERS Safety Report 5983802-X (Version None)
Quarter: 2008Q4

REPORT INFORMATION
  Report Type: 
  Country: None (occurrence: None)
  Receive Date: 20081208
  Receipt Date: 20081202
  Transmission Date: 20090506
  Serious: Yes (Other)
  Sender: FDA-Public Use
  Company Number: US-ASTRAZENECA-2008UW12441

PATIENT
  Sex: Male

DRUGS (6)
  1. SEROQUEL [Suspect]
     Indication: DEPRESSION
     Dosage: 100-300MG
     Route: 048
     Dates: start: 19990101, end: 20060601
  2. SEROQUEL [Suspect]
     Indication: PSYCHOTIC DISORDER
     Dosage: 100-300MG
     Route: 048
     Dates: start: 19990101, end: 20060601
  3. GEODON [Concomitant]
     Dates: start: 20010401
  4. RISPERDAL [Concomitant]
     Dates: start: 20030101
  5. ZYPREXA [Concomitant]
     Dates: start: 20010501
  6. ELAVIL [Concomitant]
     Dates: start: 20000301

REACTIONS (3)
  - DIABETES MELLITUS [None]
  - NEUROPATHY PERIPHERAL [None]
  - PERIODONTAL DISEASE [None]
